FAERS Safety Report 7398104-7 (Version None)
Quarter: 2011Q2

REPORT INFORMATION
  Report Type: 
  Country: None (occurrence: None)
  Receive Date: 20110406
  Receipt Date: 20110329
  Transmission Date: 20111010
  Serious: Yes (Hospitalization)
  Sender: FDA-Public Use
  Company Number: US-GILEAD-2011-0037995

PATIENT
  Sex: Female

DRUGS (1)
  1. LETAIRIS [Suspect]
     Indication: PRODUCT USED FOR UNKNOWN INDICATION
     Route: 048
     Dates: start: 20110216

REACTIONS (5)
  - FATIGUE [None]
  - CHEST PAIN [None]
  - MYOCARDIAL INFARCTION [None]
  - DYSPNOEA [None]
  - UNEVALUABLE EVENT [None]
